FAERS Safety Report 10444922 (Version 2)
Quarter: 2014Q3

REPORT INFORMATION
  Report Type: Spontaneous
  Country: FR (occurrence: FR)
  Receive Date: 20140910
  Receipt Date: 20140910
  Transmission Date: 20150326
  Serious: Yes (Hospitalization)
  Sender: FDA-Public Use
  Company Number: PHHY2014FR087363

PATIENT
  Sex: Male
  Weight: 68.9 kg

DRUGS (5)
  1. PROZAC [Concomitant]
     Active Substance: FLUOXETINE HYDROCHLORIDE
     Dosage: 20 MG, QD
  2. EXELON PATCH [Suspect]
     Active Substance: RIVASTIGMINE
     Dosage: 4.5 MG,PER 24 HOURS
     Route: 062
     Dates: end: 201406
  3. EUPANTOL [Concomitant]
     Active Substance: PANTOPRAZOLE SODIUM
     Dosage: 20 MG, QD
  4. SERESTA [Concomitant]
     Active Substance: OXAZEPAM
     Dosage: UNK UKN, UNK
  5. RISPERDAL [Concomitant]
     Active Substance: RISPERIDONE
     Dosage: UNK UKN, UNK

REACTIONS (10)
  - Urinary retention [Unknown]
  - Dysstasia [Unknown]
  - Endocarditis enterococcal [Unknown]
  - Aggression [Unknown]
  - Prostatitis [Unknown]
  - Gait disturbance [Unknown]
  - Agitation [Unknown]
  - Constipation [Unknown]
  - Eating disorder [Unknown]
  - Abnormal behaviour [Unknown]
